FAERS Safety Report 5673048-7 (Version None)
Quarter: 2008Q1

REPORT INFORMATION
  Report Type: 
  Country: None (occurrence: None)
  Receive Date: 20080319
  Receipt Date: 20080204
  Transmission Date: 20080703
  Serious: Yes (Hospitalization)
  Sender: FDA-Public Use
  Company Number: US-ASTRAZENECA-2008UW01881

PATIENT
  Age: 25621 Day
  Sex: Female
  Weight: 91.4 kg

DRUGS (6)
  1. SYMBICORT [Suspect]
     Indication: BRONCHOSPASM
     Dosage: 80/4.5 MCG 2 PUFFS BID
     Route: 055
     Dates: start: 20080102, end: 20080102
  2. VYTORIN [Concomitant]
     Indication: BLOOD CHOLESTEROL
     Dosage: 10/20
  3. ASPIRIN [Concomitant]
     Indication: PROPHYLAXIS
  4. CALCIUM [Concomitant]
     Indication: OSTEOPENIA
  5. ZITHROMAX [Concomitant]
     Indication: UPPER RESPIRATORY TRACT INFECTION
  6. PYRIDIUM [Concomitant]
     Indication: URINARY TRACT INFECTION
     Dates: start: 20071001

REACTIONS (4)
  - NASAL CONGESTION [None]
  - PAIN IN JAW [None]
  - SUPRAVENTRICULAR TACHYCARDIA [None]
  - URINARY TRACT INFECTION [None]
